FAERS Safety Report 20173074 (Version 1)
Quarter: 2021Q4

REPORT INFORMATION
  Report Type: Spontaneous
  Country: FR (occurrence: FR)
  Receive Date: 20211211
  Receipt Date: 20211211
  Transmission Date: 20220303
  Serious: Yes (Other)
  Sender: FDA-Public Use
  Company Number: None

PATIENT
  Age: 57 Year
  Sex: Female

DRUGS (4)
  1. AZITHROMYCIN [Suspect]
     Active Substance: AZITHROMYCIN
     Indication: Tooth abscess
     Dosage: UNK (NON PRECISE)
     Route: 048
     Dates: start: 202101, end: 202101
  2. STELARA [Suspect]
     Active Substance: USTEKINUMAB
     Indication: Psoriatic arthropathy
     Dosage: 45 MG, Q3MO
     Route: 058
     Dates: start: 201802
  3. URSODIOL [Suspect]
     Active Substance: URSODIOL
     Indication: Primary biliary cholangitis
     Dosage: UNK (NON PRECISE)
     Route: 048
  4. BIRODOGYL [Suspect]
     Active Substance: METRONIDAZOLE\SPIRAMYCIN
     Indication: Tooth abscess
     Dosage: UNK (NON PRECISE)
     Route: 048
     Dates: start: 202101, end: 202101

REACTIONS (1)
  - Lipoma [Not Recovered/Not Resolved]

NARRATIVE: CASE EVENT DATE: 20210201
